FAERS Safety Report 12764456 (Version 3)
Quarter: 2016Q4

REPORT INFORMATION
  Report Type: Spontaneous
  Country: US (occurrence: US)
  Receive Date: 20160920
  Receipt Date: 20161013
  Transmission Date: 20170207
  Serious: Yes (Hospitalization, Other)
  Sender: FDA-Public Use
  Company Number: US-TAKEDA-2016TUS016372

PATIENT
  Age: 26 Year
  Sex: Male
  Weight: 80.73 kg

DRUGS (6)
  1. ENTYVIO [Suspect]
     Active Substance: VEDOLIZUMAB
     Indication: COLITIS ULCERATIVE
  2. ZYRTEC [Concomitant]
     Active Substance: CETIRIZINE HYDROCHLORIDE
     Indication: HYPERSENSITIVITY
     Dosage: UNK, BID
     Route: 048
  3. COPAXONE [Suspect]
     Active Substance: GLATIRAMER ACETATE
     Indication: MULTIPLE SCLEROSIS
     Dosage: 40 MG, 1/WEEK
     Route: 058
     Dates: start: 201605, end: 20160824
  4. PREDNISONE. [Concomitant]
     Active Substance: PREDNISONE
     Dosage: UNK
     Dates: start: 201601
  5. PREDNISONE. [Concomitant]
     Active Substance: PREDNISONE
     Indication: COLITIS ULCERATIVE
     Dosage: 10 MG, QD
     Route: 048
     Dates: start: 201512
  6. ENTYVIO [Suspect]
     Active Substance: VEDOLIZUMAB
     Indication: COLITIS
     Dosage: 300 MG, UNK
     Route: 042
     Dates: start: 20160630, end: 20160811

REACTIONS (2)
  - Cardiac failure congestive [Not Recovered/Not Resolved]
  - Eosinophilic myocarditis [Not Recovered/Not Resolved]

NARRATIVE: CASE EVENT DATE: 20160824
